FAERS Safety Report 25216091 (Version 1)
Quarter: 2025Q2

REPORT INFORMATION
  Report Type: Spontaneous
  Country: US (occurrence: US)
  Receive Date: 20250418
  Receipt Date: 20250418
  Transmission Date: 20250716
  Serious: No
  Sender: ROCHE
  Company Number: US-ROCHE-10000254314

PATIENT
  Sex: Female

DRUGS (19)
  1. ACTEMRA [Suspect]
     Active Substance: TOCILIZUMAB
     Indication: Rheumatoid arthritis
     Route: 058
  2. ALBUTEROL [Concomitant]
     Active Substance: ALBUTEROL
  3. BIOTIN [Concomitant]
     Active Substance: BIOTIN
  4. CALCIUM [Concomitant]
     Active Substance: CALCIUM
  5. CELECOXIB [Concomitant]
     Active Substance: CELECOXIB
  6. VITAMIN D3 [Concomitant]
     Active Substance: CHOLECALCIFEROL
  7. FLUTICASONE [Concomitant]
     Active Substance: FLUTICASONE
  8. JWH-018 [Concomitant]
     Active Substance: JWH-018
  9. MAGNESIUM [Concomitant]
     Active Substance: MAGNESIUM
  10. DIETARY SUPPLEMENT\HERBALS\MILK THISTLE [Concomitant]
     Active Substance: MILK THISTLE
  11. MULTIVITMIN CHE [Concomitant]
  12. NAC [Concomitant]
  13. STIOLTO RESP [Concomitant]
  14. SULFASALAZINE DELAYED-RELEASE [Concomitant]
     Active Substance: SULFASALAZINE
  15. ZINC LOZ [Concomitant]
  16. AMLODIPINE B [Concomitant]
  17. LEVOTHYROXINE [Concomitant]
     Active Substance: LEVOTHYROXINE
  18. LOVASTATIN [Concomitant]
     Active Substance: LOVASTATIN
  19. TELMISARTAN [Concomitant]
     Active Substance: TELMISARTAN

REACTIONS (5)
  - Dizziness [Unknown]
  - Injection site erythema [Unknown]
  - Headache [Unknown]
  - Cough [Unknown]
  - Increased bronchial secretion [Unknown]
